FAERS Safety Report 17688016 (Version 2)
Quarter: 2020Q3

REPORT INFORMATION
  Report Type: Spontaneous
  Country: US (occurrence: US)
  Receive Date: 20200421
  Receipt Date: 20200914
  Transmission Date: 20201102
  Serious: No
  Sender: FDA-Public Use
  Company Number: US-TEVA-2020-US-1224117

PATIENT
  Sex: Female

DRUGS (14)
  1. PIRMELLA [Concomitant]
     Active Substance: ETHINYL ESTRADIOL\NORETHINDRONE
  2. FEXOFENADINE [Concomitant]
     Active Substance: FEXOFENADINE HYDROCHLORIDE
  3. METOPROLOL. [Concomitant]
     Active Substance: METOPROLOL
  4. AMITRIPTYLINE [Concomitant]
     Active Substance: AMITRIPTYLINE
  5. PEPCID [Concomitant]
     Active Substance: FAMOTIDINE
  6. VIIBRYD [Concomitant]
     Active Substance: VILAZODONE HYDROCHLORIDE
  7. LEVOTHYROXINE. [Concomitant]
     Active Substance: LEVOTHYROXINE
  8. BUPRENORPHINE. [Suspect]
     Active Substance: BUPRENORPHINE
     Indication: PAIN
     Dosage: DOSE: 20 MCG/HR
     Route: 065
     Dates: start: 201708
  9. LYRICA [Concomitant]
     Active Substance: PREGABALIN
  10. MAGNESIUM [Concomitant]
     Active Substance: MAGNESIUM
  11. DICLOFENAC [Concomitant]
     Active Substance: DICLOFENAC
     Indication: CHRONIC SPONTANEOUS URTICARIA
  12. DICLOFENAC [Concomitant]
     Active Substance: DICLOFENAC
  13. MELOXICAM. [Concomitant]
     Active Substance: MELOXICAM
  14. DICLOFENAC [Concomitant]
     Active Substance: DICLOFENAC
     Indication: ACNE
     Dosage: TOPICAL CLEANSTERS

REACTIONS (3)
  - Rash [Not Recovered/Not Resolved]
  - Application site vesicles [Recovered/Resolved]
  - Scar [Recovering/Resolving]

NARRATIVE: CASE EVENT DATE: 20200419
